FAERS Safety Report 8068823-8 (Version None)
Quarter: 2012Q1

REPORT INFORMATION
  Report Type: 
  Country: None (occurrence: None)
  Receive Date: 20120125
  Receipt Date: 20120120
  Transmission Date: 20120608
  Serious: Yes (Life-Threatening, Hospitalization, Other)
  Sender: FDA-Public Use
  Company Number: US-BRISTOL-MYERS SQUIBB COMPANY-16360927

PATIENT
  Age: 47 Year
  Sex: Male
  Weight: 215 kg

DRUGS (20)
  1. TOPAMAX [Concomitant]
  2. GLIMEPIRIDE [Concomitant]
  3. SINGULAIR [Concomitant]
  4. LEXAPRO [Suspect]
     Indication: BIPOLAR I DISORDER
     Dates: start: 20110601
  5. LEXAPRO [Suspect]
     Indication: SCHIZOPHRENIA, PARANOID TYPE
     Dates: start: 20110601
  6. NEURONTIN [Concomitant]
  7. WELCHOL [Concomitant]
  8. ABILIFY [Suspect]
     Indication: BIPOLAR I DISORDER
     Dosage: RESTARTED IN JUL,DEC11
     Route: 048
     Dates: start: 20110601
  9. PROZAC [Suspect]
     Indication: SCHIZOPHRENIA, PARANOID TYPE
     Dates: start: 20110601
  10. SEROQUEL [Concomitant]
  11. DIOVAN [Concomitant]
  12. ABILIFY [Suspect]
     Indication: SCHIZOPHRENIA, PARANOID TYPE
     Dosage: RESTARTED IN JUL,DEC11
     Route: 048
     Dates: start: 20110601
  13. WELLBUTRIN [Suspect]
     Indication: BIPOLAR I DISORDER
     Dates: start: 20110601
  14. MISOPROSTOL [Concomitant]
  15. ACTOS [Concomitant]
  16. PROZAC [Suspect]
     Indication: MAJOR DEPRESSION
     Dates: start: 20110601
  17. PRILOSEC [Concomitant]
  18. CELEBREX [Concomitant]
  19. VESICARE [Concomitant]
  20. WELLBUTRIN [Suspect]
     Indication: SCHIZOPHRENIA, PARANOID TYPE
     Dates: start: 20110601

REACTIONS (10)
  - OVERDOSE [None]
  - DRUG INEFFECTIVE [None]
  - MEDICATION ERROR [None]
  - MAJOR DEPRESSION [None]
  - SUICIDAL IDEATION [None]
  - PARANOIA [None]
  - HEADACHE [None]
  - DIZZINESS [None]
  - DRY MOUTH [None]
  - BLOOD GLUCOSE INCREASED [None]
